FAERS Safety Report 5690878-6 (Version None)
Quarter: 2008Q2

REPORT INFORMATION
  Report Type: 
  Country: None (occurrence: None)
  Receive Date: 20080401
  Receipt Date: 20080328
  Transmission Date: 20081010
  Serious: No
  Sender: FDA-Public Use
  Company Number: US-BAXTER-2008BH002282

PATIENT
  Age: 79 Year
  Sex: Male
  Weight: 76 kg

DRUGS (2)
  1. HEPARIN SODIUM [Suspect]
     Indication: ATRIAL FIBRILLATION
     Route: 042
     Dates: start: 20071224, end: 20071224
  2. LOPRESSOR [Concomitant]
     Indication: ATRIAL FIBRILLATION
     Route: 042
     Dates: start: 20071224, end: 20071224

REACTIONS (2)
  - BRADYCARDIA [None]
  - HYPOTENSION [None]
